FAERS Safety Report 25166100 (Version 1)
Quarter: 2025Q2

REPORT INFORMATION
  Report Type: Spontaneous
  Country: US (occurrence: US)
  Receive Date: 20250407
  Receipt Date: 20250407
  Transmission Date: 20250717
  Serious: Yes (Death, Other)
  Sender: AMGEN
  Company Number: US-AMGEN-USASP2025064318

PATIENT

DRUGS (5)
  1. PREDNISONE [Suspect]
     Active Substance: PREDNISONE
     Indication: Diffuse large B-cell lymphoma
     Dosage: 100 MILLIGRAM, QD
     Route: 048
  2. FILGRASTIM [Suspect]
     Active Substance: FILGRASTIM
     Indication: Prophylaxis
     Route: 065
  3. RITUXIMAB [Concomitant]
     Active Substance: RITUXIMAB
     Indication: Diffuse large B-cell lymphoma
     Route: 065
  4. CYCLOPHOSPHAMIDE [Concomitant]
     Active Substance: CYCLOPHOSPHAMIDE
     Indication: Diffuse large B-cell lymphoma
     Route: 065
  5. DOXORUBICIN [Concomitant]
     Active Substance: DOXORUBICIN
     Indication: Diffuse large B-cell lymphoma
     Route: 065

REACTIONS (28)
  - Death [Fatal]
  - Respiratory failure [Fatal]
  - Pneumonia [Fatal]
  - Acute kidney injury [Fatal]
  - Cardiac death [Fatal]
  - Multiple organ dysfunction syndrome [Fatal]
  - Gastrointestinal perforation [Fatal]
  - Atrioventricular block complete [Fatal]
  - Road traffic accident [Fatal]
  - Sepsis [Fatal]
  - Septic shock [Fatal]
  - Thrombocytopenia [Unknown]
  - Syncope [Unknown]
  - Leukopenia [Unknown]
  - Neutropenia [Unknown]
  - Febrile neutropenia [Unknown]
  - Neuropathy peripheral [Unknown]
  - Anaemia [Unknown]
  - Lymphopenia [Unknown]
  - Diarrhoea [Unknown]
  - Hyponatraemia [Unknown]
  - Fatigue [Unknown]
  - Hypertension [Unknown]
  - Infection [Unknown]
  - Urinary tract infection [Unknown]
  - Asthenia [Unknown]
  - Pyrexia [Unknown]
  - Therapy partial responder [Unknown]
